FAERS Safety Report 25337883 (Version 1)
Quarter: 2025Q2

REPORT INFORMATION
  Report Type: Other
  Country: IT (occurrence: IT)
  Receive Date: 20250520
  Receipt Date: 20250520
  Transmission Date: 20250717
  Serious: Yes (Death, Other)
  Sender: APTAPHARMA INC.
  Company Number: IT-AptaPharma Inc.-2177079

PATIENT
  Age: 44 Year
  Sex: Female

DRUGS (3)
  1. FLUOXETINE HYDROCHLORIDE [Suspect]
     Active Substance: FLUOXETINE HYDROCHLORIDE
     Indication: Product used for unknown indication
  2. COCAINE HYDROCHLORIDE [Suspect]
     Active Substance: COCAINE HYDROCHLORIDE
  3. ALCOHOL [Concomitant]
     Active Substance: ALCOHOL

REACTIONS (3)
  - Cardiac failure acute [Fatal]
  - Intentional product misuse [Unknown]
  - Toxicity to various agents [Fatal]
